FAERS Safety Report 5051153-6 (Version None)
Quarter: 2006Q3

REPORT INFORMATION
  Report Type: 
  Country: None (occurrence: None)
  Receive Date: 20060714
  Receipt Date: 20060703
  Transmission Date: 20061208
  Serious: Yes (Disabling)
  Sender: FDA-Public Use
  Company Number: CN-NOVOPROD-254705

PATIENT
  Age: 68 Year
  Sex: Female
  Weight: 55 kg

DRUGS (2)
  1. NOVOLIN R [Suspect]
     Indication: INSULIN-REQUIRING TYPE II DIABETES MELLITUS
     Dosage: 30-40IU MORNING AND EVENING
     Route: 058
     Dates: start: 20040807, end: 20041101
  2. NOVOLIN 50R PENFILL [Suspect]
     Indication: INSULIN-REQUIRING TYPE II DIABETES MELLITUS
     Dosage: 30-40 IU MORNING AND EVENING
     Dates: start: 20041101, end: 20050801

REACTIONS (1)
  - LIPOATROPHY [None]
